FAERS Safety Report 5734984-6 (Version None)
Quarter: 2008Q2

REPORT INFORMATION
  Report Type: 
  Country: None (occurrence: None)
  Receive Date: 20080508
  Receipt Date: 20080508
  Transmission Date: 20081010
  Serious: Yes (Hospitalization, Other)
  Sender: FDA-Public Use
  Company Number: None

PATIENT
  Age: 54 Year
  Sex: Male
  Weight: 70.3075 kg

DRUGS (1)
  1. DIGITEK   .125 MCG  BERTEK [Suspect]
     Indication: CORONARY ARTERY BYPASS
     Dosage: 1 TWICE DAILY PO
     Route: 048
     Dates: start: 20070320, end: 20080506

REACTIONS (7)
  - CARDIAC FAILURE [None]
  - DYSPNOEA [None]
  - FATIGUE [None]
  - HEART RATE DECREASED [None]
  - HEART RATE INCREASED [None]
  - INCORRECT DOSE ADMINISTERED [None]
  - NAUSEA [None]
